FAERS Safety Report 8920612 (Version 2)
Quarter: 2012Q4

REPORT INFORMATION
  Report Type: 
  Country: US (occurrence: US)
  Receive Date: 20121122
  Receipt Date: 20121210
  Transmission Date: 20130627
  Serious: Yes (Other)
  Sender: FDA-Public Use
  Company Number: US-PFIZER INC-2012288569

PATIENT

DRUGS (1)
  1. MOROCTOCOG ALFA [Suspect]
     Indication: HEMOPHILIA A

REACTIONS (1)
  - No adverse event [Unknown]
